FAERS Safety Report 4872053-8 (Version None)
Quarter: 2005Q4

REPORT INFORMATION
  Report Type: 
  Country: None (occurrence: None)
  Receive Date: 20051230
  Receipt Date: 20051220
  Transmission Date: 20060501
  Serious: Yes (Hospitalization)
  Sender: FDA-Public Use
  Company Number: 2005BI013162

PATIENT
  Age: 52 Year
  Sex: Female

DRUGS (8)
  1. AVONEX [Suspect]
     Indication: MULTIPLE SCLEROSIS
     Dosage: 30 UG;QW;IM
     Route: 030
     Dates: start: 20000501
  2. PROVIGIL [Concomitant]
  3. AMBIEN [Concomitant]
  4. INDERAL [Concomitant]
  5. ZANAFLEX [Concomitant]
  6. KLONOPIN [Concomitant]
  7. LEXAPRO [Concomitant]
  8. OXYBUTYNIN [Concomitant]

REACTIONS (6)
  - FALL [None]
  - HIP FRACTURE [None]
  - IMMOBILE [None]
  - LIVING IN RESIDENTIAL INSTITUTION [None]
  - OEDEMA PERIPHERAL [None]
  - THROMBOSIS [None]
